FAERS Safety Report 4491272-6 (Version None)
Quarter: 2004Q4

REPORT INFORMATION
  Report Type: 
  Country: None (occurrence: None)
  Receive Date: 20041101
  Receipt Date: 20041101
  Transmission Date: 20050328
  Serious: Yes (Life-Threatening, Hospitalization)
  Sender: FDA-Public Use
  Company Number: None

PATIENT
  Age: 2 Year
  Sex: Female
  Weight: 12.7 kg

DRUGS (3)
  1. CARBOPLATIN [Suspect]
  2. ETOPOSIDE [Suspect]
     Dosage: 190 MG Q24 H IV
     Route: 042
  3. MELPHALAN [Suspect]
     Dosage: 40 IV Q 24
     Route: 042

REACTIONS (3)
  - ACIDOSIS [None]
  - HYPOTENSION [None]
  - URINE OUTPUT DECREASED [None]
